FAERS Safety Report 8900798 (Version 1)
Quarter: 2012Q4

REPORT INFORMATION
  Report Type: 
  Country: FR (occurrence: FR)
  Receive Date: 20121109
  Receipt Date: 20121109
  Transmission Date: 20130627
  Serious: Yes (Other)
  Sender: FDA-Public Use
  Company Number: FR-ABBOTT-12P-056-0996524-00

PATIENT
  Age: 21 Year
  Sex: Male
  Weight: 78 kg

DRUGS (1)
  1. HUMIRA [Suspect]
     Indication: ANKYLOSING SPONDYLITIS
     Route: 058
     Dates: start: 201202, end: 201202

REACTIONS (8)
  - Dizziness postural [Recovered/Resolved]
  - Dizziness [Unknown]
  - Injection site oedema [Recovered/Resolved]
  - Ear pain [Unknown]
  - Eye pain [Unknown]
  - Anxiety [Unknown]
  - Nausea [Unknown]
  - Mobility decreased [Unknown]
